FAERS Safety Report 7272876-4 (Version None)
Quarter: 2011Q1

REPORT INFORMATION
  Report Type: 
  Country: None (occurrence: None)
  Receive Date: 20110203
  Receipt Date: 20101210
  Transmission Date: 20110831
  Serious: No
  Sender: FDA-Public Use
  Company Number: US-BAYER-2011-006031

PATIENT
  Sex: Female
  Weight: 120 kg

DRUGS (7)
  1. GEMFIBROZIL [Concomitant]
  2. BENICAR HCT [Concomitant]
  3. TEMAZEPAM [Concomitant]
  4. ACTONEL [Concomitant]
  5. ALEVE [Suspect]
     Indication: PRODUCT USED FOR UNKNOWN INDICATION
     Dosage: UNK
     Route: 048
     Dates: start: 20100101
  6. METFORMIN [Concomitant]
  7. ESTRADIOL [Concomitant]

REACTIONS (1)
  - CONSTIPATION [None]
